FAERS Safety Report 6295448-7 (Version None)
Quarter: 2009Q3

REPORT INFORMATION
  Report Type: 
  Country: None (occurrence: None)
  Receive Date: 20090730
  Receipt Date: 20090721
  Transmission Date: 20100115
  Serious: Yes (Hospitalization)
  Sender: FDA-Public Use
  Company Number: 2009-200616-NL

PATIENT
  Age: 61 Year
  Sex: Female

DRUGS (8)
  1. MIRTAZAPINE [Suspect]
     Indication: HICCUPS
     Dosage: DF
     Dates: start: 20080101, end: 20090206
  2. MIRTAZAPINE [Suspect]
     Indication: MOTION SICKNESS
     Dosage: DF
     Dates: start: 20080101, end: 20090206
  3. BACLOFEN [Suspect]
     Indication: BALANCE DISORDER
     Dosage: DF
     Dates: start: 20080101, end: 20090206
  4. BACLOFEN [Suspect]
     Indication: HICCUPS
     Dosage: DF
     Dates: start: 20080101, end: 20090206
  5. BACLOFEN [Suspect]
     Indication: MOTION SICKNESS
     Dosage: DF
     Dates: start: 20080101, end: 20090206
  6. CITICOLINE [Suspect]
     Indication: BALANCE DISORDER
     Dosage: DF
     Dates: start: 20080101, end: 20090206
  7. CITICOLINE [Suspect]
     Indication: HICCUPS
     Dosage: DF
     Dates: start: 20080101, end: 20090206
  8. CITICOLINE [Suspect]
     Indication: MOTION SICKNESS
     Dosage: DF
     Dates: start: 20080101, end: 20090206

REACTIONS (4)
  - CONDITION AGGRAVATED [None]
  - NAUSEA [None]
  - NEUROLOGICAL SYMPTOM [None]
  - VOMITING [None]
